FAERS Safety Report 9276880 (Version 1)
Quarter: 2013Q2

REPORT INFORMATION
  Report Type: Spontaneous
  Country: US (occurrence: None)
  Receive Date: 20130501
  Receipt Date: 20130501
  Transmission Date: 20140414
  Serious: No
  Sender: FDA-Public Use
  Company Number: TCI2013A01972

PATIENT
  Sex: 0

DRUGS (5)
  1. TAKEPRON [Suspect]
     Route: 048
  2. SIGMART (NICORANDIL ) [Concomitant]
  3. ACETYLSALICYLIC ACID [Concomitant]
  4. HERBESSER ( DILTIAZEM HYDROCHLORIDE) [Concomitant]
  5. N^ITRODERM(GLYCERYL TRINITRATE) [Concomitant]

REACTIONS (3)
  - Photophobia [None]
  - Dizziness [None]
  - Visual impairment [None]
